FAERS Safety Report 17749458 (Version 1)
Quarter: 2020Q2

REPORT INFORMATION
  Report Type: Spontaneous
  Country: FR (occurrence: FR)
  Receive Date: 20200505
  Receipt Date: 20200505
  Transmission Date: 20200714
  Serious: Yes (Hospitalization)
  Sender: FDA-Public Use
  Company Number: FR-ABBVIE-20K-056-3387753-00

PATIENT
  Age: 54 Year
  Sex: Female
  Weight: 54 kg

DRUGS (1)
  1. HUMIRA [Suspect]
     Active Substance: ADALIMUMAB
     Indication: NAIL PSORIASIS
     Route: 058
     Dates: start: 201509, end: 201910

REACTIONS (2)
  - Anti-aquaporin-4 antibody positive [Recovering/Resolving]
  - Neuromyelitis optica spectrum disorder [Recovering/Resolving]

NARRATIVE: CASE EVENT DATE: 20200326
